FAERS Safety Report 24753859 (Version 1)
Quarter: 2024Q4

REPORT INFORMATION
  Report Type: Spontaneous
  Country: US (occurrence: None)
  Receive Date: 20241218
  Receipt Date: 20241218
  Transmission Date: 20250115
  Serious: No
  Sender: Public
  Company Number: None

PATIENT
  Age: 20 Year
  Sex: Female

DRUGS (1)
  1. IRON DEXTRAN [Suspect]
     Active Substance: IRON DEXTRAN
     Indication: Iron deficiency anaemia
     Dosage: 25 MG ONCE INTRAVENOUS ?
     Route: 042
     Dates: start: 20241217, end: 20241217

REACTIONS (2)
  - Foetal heart rate deceleration abnormality [None]
  - Feeling abnormal [None]

NARRATIVE: CASE EVENT DATE: 20241217
